FAERS Safety Report 10024595 (Version 3)
Quarter: 2015Q2

REPORT INFORMATION
  Report Type: Spontaneous
  Country: US (occurrence: US)
  Receive Date: 20140320
  Receipt Date: 20150602
  Transmission Date: 20150821
  Serious: Yes (Hospitalization, Other)
  Sender: FDA-Public Use
  Company Number: US-SANOFI-AVENTIS-2010SA064551

PATIENT
  Age: 60 Year
  Sex: Male

DRUGS (24)
  1. LISINOPRIL. [Concomitant]
     Active Substance: LISINOPRIL
     Dates: start: 20100313
  2. ZITHROMAX [Concomitant]
     Active Substance: AZITHROMYCIN DIHYDRATE
     Dosage: 250 MG?4 TABLETS ONE TIME
  3. SODIUM CHLORIDE. [Concomitant]
     Active Substance: SODIUM CHLORIDE
  4. ASPIRIN. [Concomitant]
     Active Substance: ASPIRIN
     Dosage: 325 MG
  5. ZOCOR [Concomitant]
     Active Substance: SIMVASTATIN
     Dosage: 40 MG
  6. TEMAZEPAM. [Concomitant]
     Active Substance: TEMAZEPAM
     Dosage: 30 MG HS PRN?30 W/REFILL
  7. ALTACE [Concomitant]
     Active Substance: RAMIPRIL
     Dosage: 5 MG
  8. MILK OF MAGNESIA [Concomitant]
     Active Substance: MAGNESIUM HYDROXIDE
     Indication: CONSTIPATION
     Dosage: 800MG/5 ML CONCENTRATE?AT BEDTIME AS NEEDED
     Dates: start: 20100313, end: 20100611
  9. LISINOPRIL. [Concomitant]
     Active Substance: LISINOPRIL
     Dosage: 40 MG
  10. CIALIS [Concomitant]
     Active Substance: TADALAFIL
     Dosage: 10 MG
  11. TYLENOL [Concomitant]
     Active Substance: ACETAMINOPHEN
     Indication: PYREXIA
     Dosage: EVERY 4 HOURS AS NEEDED
     Route: 048
     Dates: start: 20100313, end: 20100611
  12. LOPRESSOR [Concomitant]
     Active Substance: METOPROLOL TARTRATE
     Dosage: STERNGTH: 50 MG
     Route: 048
     Dates: start: 20100313, end: 20100611
  13. MYLANTA [Concomitant]
     Active Substance: ALUMINUM HYDROXIDE\MAGNESIUM HYDROXIDE\SIMETHICONE
     Indication: DYSPEPSIA
     Dosage: SUSPENSION?EVERY 4 HOURS AS NEEDED
     Route: 048
     Dates: start: 20100313, end: 20100611
  14. NEXIUM [Concomitant]
     Active Substance: ESOMEPRAZOLE MAGNESIUM
     Route: 042
     Dates: start: 20100313, end: 20100611
  15. TOPROL XL [Concomitant]
     Active Substance: METOPROLOL SUCCINATE
     Dosage: 50 MG
  16. CELEBREX [Concomitant]
     Active Substance: CELECOXIB
     Dosage: 200MG
  17. CLINDAMYCIN [Concomitant]
     Active Substance: CLINDAMYCIN\CLINDAMYCIN PHOSPHATE
     Dosage: 300 MG
  18. NORVASC [Concomitant]
     Active Substance: AMLODIPINE BESYLATE
  19. AMLODIPINE [Concomitant]
     Active Substance: AMLODIPINE BESYLATE
     Dosage: 10 MG
  20. TYLENOL [Concomitant]
     Active Substance: ACETAMINOPHEN
     Indication: HEADACHE
     Dosage: EVERY 4 HOURS AS NEEDED
     Route: 048
     Dates: start: 20100313, end: 20100611
  21. NITROSTAT [Concomitant]
     Active Substance: NITROGLYCERIN
     Indication: ANGINA PECTORIS
     Route: 060
     Dates: start: 20100313, end: 20100611
  22. PLAVIX [Suspect]
     Active Substance: CLOPIDOGREL BISULFATE
     Indication: STENT PLACEMENT
     Route: 048
     Dates: start: 20090730, end: 20100313
  23. MICARDIS [Concomitant]
     Active Substance: TELMISARTAN
     Dosage: 80/12.5 MG
  24. PLAVIX [Suspect]
     Active Substance: CLOPIDOGREL BISULFATE
     Indication: CEREBROVASCULAR ACCIDENT
     Route: 048
     Dates: start: 20090730, end: 20100313

REACTIONS (5)
  - Rectal haemorrhage [Recovered/Resolved]
  - Gastrointestinal haemorrhage [Recovered/Resolved]
  - Multiple injuries [Unknown]
  - Haematochezia [Recovered/Resolved]
  - Myocardial infarction [Unknown]

NARRATIVE: CASE EVENT DATE: 20100313
